FAERS Safety Report 22740348 (Version 3)
Quarter: 2025Q1

REPORT INFORMATION
  Report Type: Spontaneous
  Country: US (occurrence: US)
  Receive Date: 20230724
  Receipt Date: 20250212
  Transmission Date: 20250409
  Serious: No
  Sender: LUPIN
  Company Number: US-LUPIN PHARMACEUTICALS INC.-2023-05849

PATIENT

DRUGS (7)
  1. ALBUTEROL SULFATE [Suspect]
     Active Substance: ALBUTEROL SULFATE
     Indication: Asthma
     Dates: start: 20230708
  2. ALBUTEROL SULFATE [Suspect]
     Active Substance: ALBUTEROL SULFATE
     Indication: Chronic obstructive pulmonary disease
  3. METOPROLOL [Concomitant]
     Active Substance: METOPROLOL
     Indication: Blood pressure abnormal
     Dosage: UNK, QD
     Route: 065
  4. SERTRALINE [Concomitant]
     Active Substance: SERTRALINE HYDROCHLORIDE
     Indication: Depression
     Dosage: UNK, QD
     Route: 065
  5. SERTRALINE [Concomitant]
     Active Substance: SERTRALINE HYDROCHLORIDE
     Indication: Anxiety
  6. ATORVASTATIN [Concomitant]
     Active Substance: ATORVASTATIN
     Indication: Blood cholesterol abnormal
     Dosage: UNK, QD
     Route: 065
  7. LEVOTHYROXINE [Concomitant]
     Active Substance: LEVOTHYROXINE
     Indication: Thyroid disorder
     Dosage: UNK, QD
     Route: 065

REACTIONS (3)
  - Dyspnoea [Unknown]
  - Drug dose omission by device [Unknown]
  - Device delivery system issue [Unknown]
